FAERS Safety Report 7644509 (Version 3)
Quarter: 2012Q4

REPORT INFORMATION
  Report Type: 
  Country: US (occurrence: US)
  Receive Date: 20101028
  Receipt Date: 20121031
  Transmission Date: 20130627
  Serious: Yes (Hospitalization)
  Sender: FDA-Public Use
  Company Number: US-BAYER-201038255NA

PATIENT
  Age: 42 Year
  Sex: Female
  Weight: 85.71 kg

DRUGS (5)
  1. YASMIN [Suspect]
     Indication: ACNE
     Route: 048
     Dates: start: 20090819, end: 20091027
  2. TETRACYCLINE [Concomitant]
     Indication: ACNE
  3. SIMVASTATIN [Concomitant]
     Indication: CHOLESTEROL LEVELS RAISED
     Dosage: UNK
     Dates: start: 200808, end: 200911
  4. TRAMADOL [Concomitant]
  5. VITAMINS NOS [Concomitant]

REACTIONS (2)
  - Deep vein thrombosis [Unknown]
  - Pulmonary embolism [Unknown]
